FAERS Safety Report 14219124 (Version 3)
Quarter: 2018Q1

REPORT INFORMATION
  Report Type: Spontaneous
  Country: US (occurrence: US)
  Receive Date: 20171123
  Receipt Date: 20180209
  Transmission Date: 20180508
  Serious: Yes (Other)
  Sender: FDA-Public Use
  Company Number: US-JNJFOC-20171028850

PATIENT
  Sex: Female

DRUGS (14)
  1. STELARA [Suspect]
     Active Substance: USTEKINUMAB
     Indication: CROHN^S DISEASE
     Route: 042
     Dates: start: 20160930
  2. STELARA [Suspect]
     Active Substance: USTEKINUMAB
     Indication: CROHN^S DISEASE
     Route: 042
  3. VITAMIN D [Concomitant]
     Active Substance: CHOLECALCIFEROL
     Route: 065
     Dates: start: 20170105
  4. LASIX [Concomitant]
     Active Substance: FUROSEMIDE
     Route: 065
     Dates: start: 20160708
  5. CODEINE SULFATE. [Concomitant]
     Active Substance: CODEINE SULFATE
     Route: 048
     Dates: start: 20170105
  6. LYSINE [Concomitant]
     Active Substance: LYSINE
     Route: 065
  7. STELARA [Suspect]
     Active Substance: USTEKINUMAB
     Indication: CROHN^S DISEASE
     Route: 042
     Dates: start: 20170112
  8. CYANOCOBALAMIN. [Concomitant]
     Active Substance: CYANOCOBALAMIN
     Route: 058
     Dates: start: 20170105
  9. LIDOCAINE. [Concomitant]
     Active Substance: LIDOCAINE
     Route: 065
     Dates: start: 20161102
  10. FOLIC ACID. [Concomitant]
     Active Substance: FOLIC ACID
     Route: 065
  11. POTASSIUM [Concomitant]
     Active Substance: POTASSIUM
     Route: 065
  12. CODEINE [Concomitant]
     Active Substance: CODEINE
     Route: 065
  13. STELARA [Suspect]
     Active Substance: USTEKINUMAB
     Indication: CROHN^S DISEASE
     Route: 042
     Dates: start: 20160930
  14. CODEINE SULFATE. [Concomitant]
     Active Substance: CODEINE SULFATE
     Route: 048
     Dates: start: 20170207

REACTIONS (7)
  - Off label use [Unknown]
  - Arthralgia [Recovering/Resolving]
  - Viral infection [Unknown]
  - Crohn^s disease [Recovering/Resolving]
  - Streptococcal infection [Unknown]
  - Product use issue [Unknown]
  - Therapeutic response decreased [Unknown]
